FAERS Safety Report 16074331 (Version 1)
Quarter: 2019Q1

REPORT INFORMATION
  Report Type: Spontaneous
  Country: US (occurrence: US)
  Receive Date: 20190314
  Receipt Date: 20190314
  Transmission Date: 20190418
  Serious: No
  Sender: FDA-Public Use
  Company Number: US-HISAMITSU-2018-US-014767

PATIENT
  Age: 84 Year
  Sex: Female
  Weight: 74.84 kg

DRUGS (2)
  1. SALONPAS PAIN RELIEF [Suspect]
     Active Substance: MENTHOL\METHYL SALICYLATE
     Indication: ANALGESIC THERAPY
     Dosage: ONCE DAILY X 8 HOURS
     Route: 061
     Dates: start: 20180825, end: 20180827
  2. DIOVAN [Concomitant]
     Active Substance: VALSARTAN
     Indication: HYPERTENSION

REACTIONS (4)
  - Pigmentation disorder [Unknown]
  - Application site pruritus [Unknown]
  - Application site erythema [Unknown]
  - Application site rash [Unknown]

NARRATIVE: CASE EVENT DATE: 20180826
